FAERS Safety Report 5230404-9 (Version None)
Quarter: 2007Q1

REPORT INFORMATION
  Report Type: 
  Country: None (occurrence: None)
  Receive Date: 20070206
  Receipt Date: 20070126
  Transmission Date: 20070707
  Serious: Yes (Other)
  Sender: FDA-Public Use
  Company Number: PHRM2006FR03205

PATIENT
  Sex: Male
  Weight: 60 kg

DRUGS (4)
  1. LAMISIL [Suspect]
     Indication: NAIL TINEA
     Dosage: 250 MG, QD
     Route: 048
     Dates: start: 20061110, end: 20061130
  2. TIAPRIDAL [Concomitant]
  3. EFFEXOR [Concomitant]
  4. SERESTA [Concomitant]

REACTIONS (1)
  - BIPOLAR I DISORDER [None]
